FAERS Safety Report 7957696-7 (Version None)
Quarter: 2011Q4

REPORT INFORMATION
  Report Type: 
  Country: None (occurrence: None)
  Receive Date: 20111205
  Receipt Date: 20111129
  Transmission Date: 20120403
  Serious: Yes (Hospitalization, Other)
  Sender: FDA-Public Use
  Company Number: PHEH2011US010445

PATIENT
  Sex: Male

DRUGS (9)
  1. FUROSEMIDE [Concomitant]
     Dosage: 20 MG, UNK
  2. POLYETHYLENE GLYCOL [Concomitant]
     Dosage: 17 G, UNK
     Dates: start: 20110218
  3. EXJADE [Suspect]
     Indication: SICKLE CELL ANAEMIA WITH CRISIS
     Dosage: 250 MG, UNK
     Route: 048
     Dates: start: 20090811, end: 20100220
  4. FENTANYL [Concomitant]
     Dosage: 25 UG, UNK
     Dates: start: 20110218
  5. KLOR-CON [Concomitant]
     Dosage: 10 10 MEQ TAB
     Dates: start: 20110218
  6. PROMETHAZINE [Concomitant]
     Dosage: 25 MG, UNK
     Dates: start: 20110218
  7. WARFARIN SODIUM [Concomitant]
     Dosage: 5 MG, UNK
     Dates: start: 20110218
  8. NITROGLYCERIN ER [Concomitant]
     Dosage: 6.5 MG, UNK
     Route: 048
  9. METOPROLOL TARTRATE [Concomitant]
     Dosage: 25 MG, UNK
     Dates: start: 20110218

REACTIONS (1)
  - PNEUMONIA [None]
